FAERS Safety Report 4943061-3 (Version None)
Quarter: 2006Q1

REPORT INFORMATION
  Report Type: 
  Country: None (occurrence: None)
  Receive Date: 20060309
  Receipt Date: 20060221
  Transmission Date: 20060701
  Serious: Yes (Hospitalization)
  Sender: FDA-Public Use
  Company Number: WAES 0603CAN00018

PATIENT
  Age: 60 Year
  Sex: Male

DRUGS (7)
  1. VIOXX [Suspect]
     Indication: RHEUMATOID ARTHRITIS
     Dosage: 25 MG/BID PO
     Route: 048
     Dates: start: 19990101, end: 20040901
  2. ABATACEPT [Concomitant]
  3. ASPIRIN [Concomitant]
  4. CELECOXIB [Concomitant]
  5. METHOTREXATE [Concomitant]
  6. RAMIPRIL [Concomitant]
  7. SIMVASTATIN [Concomitant]

REACTIONS (4)
  - CEREBROVASCULAR ACCIDENT [None]
  - NAUSEA [None]
  - PARAESTHESIA [None]
  - VISUAL DISTURBANCE [None]
